FAERS Safety Report 23960674 (Version 1)
Quarter: 2024Q2

REPORT INFORMATION
  Report Type: Spontaneous
  Country: IT (occurrence: IT)
  Receive Date: 20240611
  Receipt Date: 20240611
  Transmission Date: 20240716
  Serious: Yes (Hospitalization, Other)
  Sender: FDA-Public Use
  Company Number: None

PATIENT
  Age: 43 Year
  Sex: Female

DRUGS (6)
  1. KEYTRUDA [Suspect]
     Active Substance: PEMBROLIZUMAB
     Indication: Breast cancer
     Dosage: FROM 30.08 TO 15.11.23, 4 CYCLES WERE ADMINISTERED WITH PEMBROLIZUMAB IN ASSOCIATION WITH CARBOPLATI
     Route: 042
     Dates: start: 20230830, end: 20231115
  2. KEYTRUDA [Suspect]
     Active Substance: PEMBROLIZUMAB
     Dosage: FROM 30.08 TO 15.11.23, 4 CYCLES WERE ADMINISTERED WITH PEMBROLIZUMAB IN ASSOCIATION WITH CARBOPLATI
     Route: 042
     Dates: start: 20240110, end: 20240321
  3. EPIRUBICIN [Concomitant]
     Active Substance: EPIRUBICIN
     Indication: Breast cancer
  4. CARBOPLATIN [Concomitant]
     Active Substance: CARBOPLATIN
     Indication: Breast cancer
  5. CYCLOPHOSPHAMIDE [Concomitant]
     Active Substance: CYCLOPHOSPHAMIDE
     Indication: Breast cancer
  6. PACLITAXEL [Concomitant]
     Active Substance: PACLITAXEL
     Indication: Breast cancer

REACTIONS (1)
  - Nephropathy toxic [Recovering/Resolving]
